FAERS Safety Report 19633490 (Version 1)
Quarter: 2021Q3

REPORT INFORMATION
  Report Type: Spontaneous
  Country: US (occurrence: US)
  Receive Date: 20210729
  Receipt Date: 20210729
  Transmission Date: 20211014
  Serious: Yes (Hospitalization)
  Sender: FDA-Public Use
  Company Number: None

PATIENT

DRUGS (10)
  1. FOLBIC [Concomitant]
     Active Substance: CYANOCOBALAMIN\FOLIC ACID\PYRIDOXINE
  2. LEVOFLOXACIN. [Concomitant]
     Active Substance: LEVOFLOXACIN
  3. ONDANSETRON [Concomitant]
     Active Substance: ONDANSETRON
  4. SMZ/TMP DS [Concomitant]
     Active Substance: SULFAMETHOXAZOLE\TRIMETHOPRIM
  5. PROCHLORPER [Concomitant]
  6. GRANIX [Suspect]
     Active Substance: TBO-FILGRASTIM
     Indication: PLASMA CELL MYELOMA
     Dosage: ?          OTHER STRENGTH:480/0.8 UG/ML;OTHER FREQUENCY:QPMX7;?
     Route: 058
     Dates: start: 20210623
  7. ACYCLOVIR. [Concomitant]
     Active Substance: ACYCLOVIR
  8. ALLOPURINOL. [Concomitant]
     Active Substance: ALLOPURINOL
  9. DEXAMETHASON [Concomitant]
     Active Substance: DEXAMETHASONE
  10. HYDROCO/APAP [Concomitant]
     Active Substance: ACETAMINOPHEN\HYDROCODONE

REACTIONS (1)
  - Hospitalisation [None]
